FAERS Safety Report 26129055 (Version 1)
Quarter: 2025Q4

REPORT INFORMATION
  Report Type: Spontaneous
  Country: US (occurrence: US)
  Receive Date: 20251208
  Receipt Date: 20251208
  Transmission Date: 20260117
  Serious: Yes (Life-Threatening, Hospitalization)
  Sender: MACLEODS
  Company Number: US-MLMSERVICE-20251121-PI722653-00217-1

PATIENT

DRUGS (2)
  1. METFORMIN HYDROCHLORIDE [Suspect]
     Active Substance: METFORMIN HYDROCHLORIDE
     Indication: Type 2 diabetes mellitus
     Dosage: 850 MG BID
     Route: 065
  2. BISMUTH SUBSALICYLATE [Suspect]
     Active Substance: BISMUTH SUBSALICYLATE
     Indication: Product used for unknown indication
     Dosage: CONSUMED AROUND 2 LITERS OF BISMUTH SUBSALICYLATE TOTAL IN THE TWO WEEKS.
     Route: 065

REACTIONS (5)
  - Lactic acidosis [Recovered/Resolved]
  - Acute kidney injury [Recovered/Resolved]
  - Systemic inflammatory response syndrome [Recovered/Resolved]
  - Pancreatic enzymes increased [Recovered/Resolved]
  - Potentiating drug interaction [Recovered/Resolved]
